FAERS Safety Report 21971126 (Version 2)
Quarter: 2023Q1

REPORT INFORMATION
  Report Type: Report from Study
  Country: CN (occurrence: CN)
  Receive Date: 20230209
  Receipt Date: 20230224
  Transmission Date: 20230417
  Serious: Yes (Hospitalization)
  Sender: FDA-Public Use
  Company Number: CN-KARYOPHARM-2023KPT000531

PATIENT
  Age: 70 Year
  Sex: Male
  Weight: 66 kg

DRUGS (8)
  1. SELINEXOR [Suspect]
     Active Substance: SELINEXOR
     Indication: Myelofibrosis
     Dosage: 80 MG, WEEKLY
     Route: 048
     Dates: start: 20230105
  2. MEROPENEM [Concomitant]
     Active Substance: MEROPENEM
     Indication: Viral infection
     Dosage: 0.5 G CONTINUOUS (IV)
     Route: 015
     Dates: start: 20221229, end: 20221229
  3. ADENOSINE CYCLIC PHOSPHATE MEGLUMINE [Concomitant]
     Active Substance: ADENOSINE CYCLIC PHOSPHATE MEGLUMINE
     Indication: Viral infection
     Dosage: 60 MG, CONTINUOUS (IV)
     Route: 015
     Dates: start: 20221219, end: 20230105
  4. AMMONIUM GLYCYRRHIZATE\CYSTEINE [Concomitant]
     Active Substance: AMMONIUM GLYCYRRHIZATE\CYSTEINE
     Indication: Viral infection
     Dosage: 250 ML, CONTINUOUS (IV)
     Route: 015
     Dates: start: 20221220, end: 20230105
  5. LIVER PROTECT [Concomitant]
     Indication: Viral infection
     Dosage: 3 DOSAGE FORM, TID
     Route: 048
     Dates: start: 20221220, end: 20230105
  6. CEFUROXIME SODIUM [Concomitant]
     Active Substance: CEFUROXIME SODIUM
     Indication: Viral infection
     Dosage: 3 G CONTINUOUS IV
     Route: 015
     Dates: start: 20221230, end: 20230105
  7. RABEPRAZOLE [Concomitant]
     Active Substance: RABEPRAZOLE
     Indication: Abdominal discomfort
     Dosage: 10 MG, QD
     Route: 048
     Dates: start: 20190320, end: 20200120
  8. RABEPRAZOLE [Concomitant]
     Active Substance: RABEPRAZOLE
     Dosage: 20 MG, QD
     Route: 048
     Dates: start: 20200121

REACTIONS (1)
  - Pyrexia [Recovering/Resolving]

NARRATIVE: CASE EVENT DATE: 20230127
